FAERS Safety Report 5793909-8 (Version None)
Quarter: 2008Q2

REPORT INFORMATION
  Report Type: 
  Country: None (occurrence: None)
  Receive Date: 20080627
  Receipt Date: 20080616
  Transmission Date: 20081010
  Serious: Yes (Death, Life-Threatening, Hospitalization)
  Sender: FDA-Public Use
  Company Number: FR-PFIZER INC-2008003976

PATIENT
  Sex: Female

DRUGS (1)
  1. LYRICA [Suspect]
     Dosage: DAILY DOSE:225MG-FREQ:EVERYDAY
     Route: 048

REACTIONS (5)
  - BRADYCARDIA [None]
  - COMA [None]
  - DECUBITUS ULCER [None]
  - ENCEPHALOPATHY [None]
  - MYOCLONUS [None]
